FAERS Safety Report 15452874 (Version 1)
Quarter: 2018Q4

REPORT INFORMATION
  Report Type: Spontaneous
  Country: ZA (occurrence: ZA)
  Receive Date: 20181001
  Receipt Date: 20181001
  Transmission Date: 20190204
  Serious: Yes (Death)
  Sender: FDA-Public Use
  Company Number: ZA-PFIZER INC-2018249739

PATIENT
  Age: 72 Year
  Sex: Male

DRUGS (10)
  1. ASPAVOR [Suspect]
     Active Substance: ATORVASTATIN
     Dosage: 20 MG, UNK
  2. ECOTRIN [Suspect]
     Active Substance: ASPIRIN
     Dosage: 81 MG, UNK
  3. THADEN [Suspect]
     Active Substance: DOTHIEPIN HYDROCHLORIDE
     Dosage: 75 MG, UNK
  4. COXLEON [Suspect]
     Active Substance: CELECOXIB
     Dosage: 200 MG, UNK
  5. AZOR /00595201/ [Suspect]
     Active Substance: ALPRAZOLAM
     Dosage: 0.5 MG, UNK
  6. ZOLPIHEXAL [Suspect]
     Active Substance: ZOLPIDEM TARTRATE
     Dosage: 10 MG, UNK
  7. DETRUNORM [Suspect]
     Active Substance: PROPIVERINE HYDROCHLORIDE
     Dosage: 15 MG, UNK
  8. TAREG [Suspect]
     Active Substance: VALSARTAN
     Dosage: 160 MG, UNK
  9. DORMONOCT [Suspect]
     Active Substance: LOPRAZOLAM
     Dosage: 2 MG, UNK
  10. FOXAIR [Suspect]
     Active Substance: FLUTICASONE PROPIONATE\SALMETEROL XINAFOATE
     Dosage: 50/250MCG, UNK

REACTIONS (1)
  - Death [Fatal]
